FAERS Safety Report 15580430 (Version 1)
Quarter: 2018Q4

REPORT INFORMATION
  Report Type: Spontaneous
  Country: US (occurrence: US)
  Receive Date: 20181102
  Receipt Date: 20181102
  Transmission Date: 20190205
  Serious: Yes (Hospitalization)
  Sender: FDA-Public Use
  Company Number: US-UNITED THERAPEUTICS-UNT-2018-017810

PATIENT
  Age: 5 Year
  Sex: Male

DRUGS (1)
  1. DINUTUXIMAB [Suspect]
     Active Substance: DINUTUXIMAB
     Indication: MONOCLONAL ANTIBODY UNCONJUGATED THERAPY
     Route: 041

REACTIONS (1)
  - Pain [Not Recovered/Not Resolved]
